FAERS Safety Report 19994213 (Version 1)
Quarter: 2021Q4

REPORT INFORMATION
  Report Type: Spontaneous
  Country: FI (occurrence: FI)
  Receive Date: 20211026
  Receipt Date: 20211026
  Transmission Date: 20220303
  Serious: Yes (Death)
  Sender: FDA-Public Use
  Company Number: FI-FIMEA-20215273

PATIENT
  Age: 70 Year
  Sex: Male

DRUGS (5)
  1. RITUXIMAB [Suspect]
     Active Substance: RITUXIMAB
     Indication: Diffuse large B-cell lymphoma
     Dosage: CYCLICAL
     Route: 041
     Dates: start: 20210128, end: 20210216
  2. VINCRISTINE [Concomitant]
     Active Substance: VINCRISTINE
     Indication: Diffuse large B-cell lymphoma
     Dosage: CYCLICAL
     Dates: start: 20210128, end: 20210422
  3. DOXORUBICIN [Concomitant]
     Active Substance: DOXORUBICIN
     Indication: Diffuse large B-cell lymphoma
     Dosage: CYCLICAL
     Dates: start: 20210128, end: 20210422
  4. CYCLOPHOSPHAMIDE [Concomitant]
     Active Substance: CYCLOPHOSPHAMIDE
     Indication: Diffuse large B-cell lymphoma
     Dosage: CYCLICAL
     Dates: start: 20210128, end: 20210422
  5. PREDNISOLONE [Concomitant]
     Active Substance: PREDNISOLONE
     Indication: Diffuse large B-cell lymphoma
     Dosage: CYCLICAL
     Dates: start: 20210128, end: 20210422

REACTIONS (6)
  - Pneumothorax spontaneous [Fatal]
  - Depressed level of consciousness [Fatal]
  - Central venous catheterisation [Fatal]
  - Pneumocystis jirovecii pneumonia [Fatal]
  - Full blood count decreased [Fatal]
  - Interstitial lung disease [Fatal]

NARRATIVE: CASE EVENT DATE: 20210318
